FAERS Safety Report 5093184-6 (Version None)
Quarter: 2006Q3

REPORT INFORMATION
  Report Type: 
  Country: None (occurrence: None)
  Receive Date: 20060828
  Receipt Date: 20060817
  Transmission Date: 20061208
  Serious: Yes (Other)
  Sender: FDA-Public Use
  Company Number: 228853

PATIENT
  Age: 79 Year
  Sex: Male

DRUGS (1)
  1. RANIBIZUMAB(RANIBIZUMAB) PWDR + SOLVENT,INJECTION SOLN [Suspect]
     Indication: MACULAR DEGENERATION
     Dosage: INTRAVITREAL
     Dates: start: 20001201

REACTIONS (1)
  - DRUG ADMINISTERED AT INAPPROPRIATE SITE [None]
